FAERS Safety Report 13739191 (Version 1)
Quarter: 2017Q3

REPORT INFORMATION
  Report Type: Report from Study
  Country: US (occurrence: US)
  Receive Date: 20170710
  Receipt Date: 20170710
  Transmission Date: 20171127
  Serious: No
  Sender: FDA-Public Use
  Company Number: US-SAOL THERAPEUTICS-2016SAO00410

PATIENT
  Age: 56 Year
  Sex: Female

DRUGS (16)
  1. CLONIDINE. [Suspect]
     Active Substance: CLONIDINE
     Dosage: 49.96 ?G, \DAY
     Route: 037
     Dates: start: 20160205, end: 20160428
  2. CLONIDINE. [Suspect]
     Active Substance: CLONIDINE
     Dosage: 62.88 ?G, \DAY
     Route: 037
     Dates: start: 20160428
  3. CLONIDINE. [Suspect]
     Active Substance: CLONIDINE
     Dosage: 73.96 ?G, \DAY
     Route: 037
     Dates: start: 20160205, end: 20160428
  4. DILAUDID [Suspect]
     Active Substance: HYDROMORPHONE HYDROCHLORIDE
     Dosage: 0.9012 MG, \DAY
     Route: 037
     Dates: start: 20160428
  5. COMPOUNDED BACLOFEN [Suspect]
     Active Substance: BACLOFEN
     Indication: BONE DISORDER
     Dosage: 49.96 ?G, \DAY
     Route: 037
     Dates: start: 20160205, end: 20160428
  6. COMPOUNDED BACLOFEN [Suspect]
     Active Substance: BACLOFEN
     Dosage: 45.06 ?G, \DAY
     Route: 037
     Dates: start: 20160428
  7. COMPOUNDED BACLOFEN [Suspect]
     Active Substance: BACLOFEN
     Dosage: 62.88 ?G, \DAY
     Route: 037
     Dates: start: 20160428
  8. BUPIVACAINE. [Suspect]
     Active Substance: BUPIVACAINE
     Dosage: 2.704 MG, \DAY
     Route: 037
     Dates: start: 20160428
  9. COMPOUNDED BACLOFEN [Suspect]
     Active Substance: BACLOFEN
     Indication: PAIN
     Dosage: 73.69 ?G, \DAY
     Route: 037
     Dates: start: 20160205, end: 20160428
  10. DILAUDID [Suspect]
     Active Substance: HYDROMORPHONE HYDROCHLORIDE
     Dosage: 0.9992 MG, \DAY
     Route: 037
     Dates: start: 20160205, end: 20160428
  11. DILAUDID [Suspect]
     Active Substance: HYDROMORPHONE HYDROCHLORIDE
     Dosage: 0.9012 MG, \DAY
     Route: 037
     Dates: start: 20160428
  12. BUPIVACAINE. [Suspect]
     Active Substance: BUPIVACAINE
     Dosage: 2.998 MG, \DAY
     Route: 037
     Dates: start: 20160205, end: 20160428
  13. BUPIVACAINE. [Suspect]
     Active Substance: BUPIVACAINE
     Dosage: 3.773 MG, \DAY
     Route: 037
     Dates: start: 20160428
  14. DILAUDID [Suspect]
     Active Substance: HYDROMORPHONE HYDROCHLORIDE
     Dosage: 0.9992 MG, \DAY
     Route: 037
     Dates: start: 20160205, end: 20160428
  15. BUPIVACAINE. [Suspect]
     Active Substance: BUPIVACAINE
     Dosage: 4.421 MG, \DAY
     Route: 037
     Dates: start: 20160205, end: 20160428
  16. CLONIDINE. [Suspect]
     Active Substance: CLONIDINE
     Dosage: 45.06 ?G, \DAY
     Route: 037
     Dates: start: 20160428

REACTIONS (5)
  - Back pain [Not Recovered/Not Resolved]
  - Off label use [Unknown]
  - Chest pain [Not Recovered/Not Resolved]
  - Pain in extremity [Not Recovered/Not Resolved]
  - Bone pain [Not Recovered/Not Resolved]

NARRATIVE: CASE EVENT DATE: 20160510
